FAERS Safety Report 25461894 (Version 1)
Quarter: 2025Q2

REPORT INFORMATION
  Report Type: Spontaneous
  Country: CZ (occurrence: CZ)
  Receive Date: 20250620
  Receipt Date: 20250620
  Transmission Date: 20250717
  Serious: Yes (Other)
  Sender: SANOFI AVENTIS
  Company Number: CZ-SA-2025SA172902

PATIENT
  Age: 74 Year
  Sex: Female

DRUGS (1)
  1. CLOPIDOGREL BISULFATE [Suspect]
     Active Substance: CLOPIDOGREL BISULFATE
     Indication: Ischaemic stroke

REACTIONS (6)
  - Bicytopenia [Recovered/Resolved]
  - Thrombocytopenia [Recovered/Resolved]
  - Anaemia macrocytic [Recovered/Resolved]
  - Skin haemorrhage [Unknown]
  - Mucosal haemorrhage [Unknown]
  - Condition aggravated [Unknown]
